FAERS Safety Report 6219438-5 (Version None)
Quarter: 2009Q2

REPORT INFORMATION
  Report Type: 
  Country: None (occurrence: None)
  Receive Date: 20090605
  Receipt Date: 20090602
  Transmission Date: 20091009
  Serious: Yes (Death)
  Sender: FDA-Public Use
  Company Number: 2009SP011642

PATIENT
  Age: 47 Year
  Sex: Female
  Weight: 83.4619 kg

DRUGS (16)
  1. TEMOZOLOMIDE                 (100 MG/M2) [Suspect]
     Indication: BREAST CANCER METASTATIC
     Dosage: 100 MG/M2; PO, 100 MG/M2; PO, 100 MG/M2; PO
     Route: 048
     Dates: start: 20090312
  2. TEMOZOLOMIDE                 (100 MG/M2) [Suspect]
     Indication: BREAST CANCER METASTATIC
     Dosage: 100 MG/M2; PO, 100 MG/M2; PO, 100 MG/M2; PO
     Route: 048
     Dates: start: 20090327
  3. TEMOZOLOMIDE                 (100 MG/M2) [Suspect]
     Indication: BREAST CANCER METASTATIC
     Dosage: 100 MG/M2; PO, 100 MG/M2; PO, 100 MG/M2; PO
     Route: 048
     Dates: start: 20090416
  4. IRINOTECAN              (125 MG/M2) [Suspect]
     Indication: BREAST CANCER METASTATIC
     Dosage: 125 MG/M2; IV, 125 MG/M2; IV, 125 MG/M2; QOW; IV
     Route: 042
     Dates: start: 20090312
  5. IRINOTECAN              (125 MG/M2) [Suspect]
     Indication: BREAST CANCER METASTATIC
     Dosage: 125 MG/M2; IV, 125 MG/M2; IV, 125 MG/M2; QOW; IV
     Route: 042
     Dates: start: 20090327
  6. IRINOTECAN              (125 MG/M2) [Suspect]
     Indication: BREAST CANCER METASTATIC
     Dosage: 125 MG/M2; IV, 125 MG/M2; IV, 125 MG/M2; QOW; IV
     Route: 042
     Dates: start: 20090416
  7. NEXIUM [Concomitant]
  8. DECADRON [Concomitant]
  9. LEVOXYL [Concomitant]
  10. ZOFRAN [Concomitant]
  11. LORAZEPAM [Concomitant]
  12. REGLAN [Concomitant]
  13. MS CONTIN [Concomitant]
  14. IBUPROFEN [Concomitant]
  15. BENADRYL [Concomitant]
  16. SENOKOT [Concomitant]

REACTIONS (1)
  - FATIGUE [None]
